FAERS Safety Report 4437693-9 (Version None)
Quarter: 2004Q3

REPORT INFORMATION
  Report Type: 
  Country: None (occurrence: None)
  Receive Date: 20040831
  Receipt Date: 20040625
  Transmission Date: 20050211
  Serious: No
  Sender: FDA-Public Use
  Company Number: 17558

PATIENT
  Age: 69 Year
  Sex: Female

DRUGS (5)
  1. ZOVIRAX [Suspect]
     Dosage: 1APP SIX TIMES PER DAY
     Route: 061
     Dates: start: 20030101
  2. SYNTHROID [Concomitant]
  3. ZOCOR [Concomitant]
  4. ZOLOFT [Concomitant]
  5. IBUPROFEN [Concomitant]

REACTIONS (2)
  - DRUG INEFFECTIVE [None]
  - PHARMACEUTICAL PRODUCT COMPLAINT [None]
